FAERS Safety Report 13642952 (Version 1)
Quarter: 2017Q2

REPORT INFORMATION
  Report Type: Spontaneous
  Country: US (occurrence: US)
  Receive Date: 20170612
  Receipt Date: 20170612
  Transmission Date: 20170830
  Serious: Yes (Other)
  Sender: FDA-Public Use
  Company Number: US-ALLERGAN-1723794US

PATIENT
  Age: 1 Day

DRUGS (1)
  1. LEXAPRO [Suspect]
     Active Substance: ESCITALOPRAM OXALATE
     Indication: MATERNAL EXPOSURE DURING PREGNANCY
     Route: 064

REACTIONS (8)
  - Exposure during pregnancy [Unknown]
  - Pain [Unknown]
  - Emotional disorder [Unknown]
  - Cerebral disorder [Unknown]
  - Injury [Not Recovered/Not Resolved]
  - Nervous system disorder [Unknown]
  - Decreased interest [Unknown]
  - Emotional distress [Unknown]
